FAERS Safety Report 7689427-2 (Version None)
Quarter: 2011Q3

REPORT INFORMATION
  Report Type: 
  Country: None (occurrence: None)
  Receive Date: 20110817
  Receipt Date: 20110809
  Transmission Date: 20111222
  Serious: Yes (Other)
  Sender: FDA-Public Use
  Company Number: PHHY2011US59034

PATIENT
  Sex: Female

DRUGS (4)
  1. PREDNISONE [Concomitant]
     Dates: start: 20090101
  2. VERPAMIL [Concomitant]
     Route: 048
     Dates: start: 20070122
  3. DDAVP [Concomitant]
     Dates: start: 20090101
  4. SANDOSTATIN LAR [Suspect]
     Indication: ACROMEGALY
     Dosage: 10 MG, QMO
     Route: 030
     Dates: start: 20100723

REACTIONS (1)
  - DIVERTICULITIS [None]
